FAERS Safety Report 14297268 (Version 3)
Quarter: 2018Q2

REPORT INFORMATION
  Report Type: Spontaneous
  Country: CA (occurrence: CA)
  Receive Date: 20171218
  Receipt Date: 20180604
  Transmission Date: 20180711
  Serious: Yes (Other)
  Sender: FDA-Public Use
  Company Number: CA-PFIZER INC-2017392178

PATIENT
  Age: 41 Year
  Sex: Female

DRUGS (3)
  1. XELJANZ [Suspect]
     Active Substance: TOFACITINIB CITRATE
     Indication: RHEUMATOID ARTHRITIS
     Dosage: 5 MG, TWICE DAILY
     Route: 048
     Dates: start: 20170824, end: 201710
  2. TRAMACET [Concomitant]
     Active Substance: ACETAMINOPHEN\TRAMADOL
     Indication: PAIN
     Dosage: UNK UNK, AS NEEDED
     Route: 065
  3. XELJANZ [Suspect]
     Active Substance: TOFACITINIB CITRATE
     Dosage: 5 MG, TWICE DAILY
     Route: 048
     Dates: start: 201711

REACTIONS (11)
  - Drug ineffective [Recovered/Resolved]
  - Alopecia [Not Recovered/Not Resolved]
  - Malaise [Unknown]
  - Finger deformity [Not Recovered/Not Resolved]
  - Lower respiratory tract infection [Unknown]
  - Cough [Not Recovered/Not Resolved]
  - Upper-airway cough syndrome [Not Recovered/Not Resolved]
  - Pertussis [Recovered/Resolved]
  - Condition aggravated [Recovering/Resolving]
  - Sinusitis [Not Recovered/Not Resolved]
  - Foot deformity [Not Recovered/Not Resolved]
